FAERS Safety Report 8519937-7 (Version None)
Quarter: 2012Q3

REPORT INFORMATION
  Report Type: 
  Country: None (occurrence: None)
  Receive Date: 20120719
  Receipt Date: 20120705
  Transmission Date: 20120928
  Serious: Yes (Death, Hospitalization)
  Sender: FDA-Public Use
  Company Number: US-RANBAXY-2012US-57800

PATIENT
  Age: 68 Year
  Sex: Female

DRUGS (10)
  1. CYMBALTA [Suspect]
     Indication: DEPRESSION
  2. FENTANYL [Suspect]
     Indication: ANALGESIC THERAPY
     Dosage: UNKNOWN
     Route: 065
  3. PAXIL [Suspect]
     Indication: ANXIETY
     Dosage: UNKNOWN
     Route: 065
  4. FENTANYL [Suspect]
     Indication: ANAESTHESIA PROCEDURE
     Route: 065
  5. FENTANYL [Suspect]
     Indication: MAINTENANCE OF ANAESTHESIA
     Dosage: UNKNOWN
     Route: 065
  6. ONDANSETRON [Suspect]
     Indication: PRODUCT USED FOR UNKNOWN INDICATION
     Dosage: UNKNOWN
     Route: 065
  7. WELLBUTRIN [Suspect]
     Indication: ANXIETY
     Dosage: UNKNOWN
     Route: 065
  8. PAXIL [Suspect]
     Indication: DEPRESSION
  9. CYMBALTA [Suspect]
     Indication: ANXIETY
     Dosage: UNKNOWN
     Route: 065
  10. WELLBUTRIN [Suspect]
     Indication: DEPRESSION

REACTIONS (1)
  - SEROTONIN SYNDROME [None]
